FAERS Safety Report 8850545 (Version 2)
Quarter: 2012Q4

REPORT INFORMATION
  Report Type: 
  Country: US (occurrence: US)
  Receive Date: 20121019
  Receipt Date: 20121024
  Transmission Date: 20130627
  Serious: No
  Sender: FDA-Public Use
  Company Number: US-ABBOTT-12P-163-0997551-00

PATIENT
  Sex: Female

DRUGS (2)
  1. ERYTHROMYCIN BASE FILMTAB [Suspect]
     Indication: PRODUCT USED FOR UNKNOWN INDICATION
  2. TETRACYCLINE [Suspect]
     Indication: PRODUCT USED FOR UNKNOWN INDICATION

REACTIONS (2)
  - Rash [Unknown]
  - Multiple allergies [Unknown]
